FAERS Safety Report 8786097 (Version 3)
Quarter: 2015Q3

REPORT INFORMATION
  Report Type: Report from Study
  Country: US (occurrence: US)
  Receive Date: 20120914
  Receipt Date: 20150706
  Transmission Date: 20151125
  Serious: Yes (Death, Other)
  Sender: FDA-Public Use
  Company Number: US-ROCHE-1127963

PATIENT
  Age: 60 Year
  Sex: Female

DRUGS (22)
  1. ATIVAN [Concomitant]
     Active Substance: LORAZEPAM
     Route: 065
  2. CODEINE [Concomitant]
     Active Substance: CODEINE
     Dosage: 1-2 TABLETS
     Route: 048
  3. HYDROCHLOROTHIAZIDE. [Concomitant]
     Active Substance: HYDROCHLOROTHIAZIDE
     Route: 065
  4. IRINOTECAN [Concomitant]
     Active Substance: IRINOTECAN
     Route: 065
     Dates: start: 20090914, end: 20100316
  5. MAGNESIUM OXIDE. [Concomitant]
     Active Substance: MAGNESIUM OXIDE
     Route: 065
  6. LOMOTIL (ATROPINE SULFATE/DIPHENOXYLATE HYDROCHLORIDE) [Concomitant]
     Indication: DIARRHOEA
     Dosage: P.R.N
     Route: 065
  7. SYNTHROID [Concomitant]
     Active Substance: LEVOTHYROXINE SODIUM
     Route: 065
  8. ERBITUX [Concomitant]
     Active Substance: CETUXIMAB
  9. AVASTIN [Suspect]
     Active Substance: BEVACIZUMAB
     Indication: COLON CANCER
     Route: 042
     Dates: start: 20050615
  10. AVASTIN [Suspect]
     Active Substance: BEVACIZUMAB
     Indication: COLON CANCER
     Route: 042
  11. K-TAB [Concomitant]
     Active Substance: POTASSIUM CHLORIDE
     Route: 065
  12. COUMADIN [Concomitant]
     Active Substance: WARFARIN SODIUM
  13. AVASTIN [Suspect]
     Active Substance: BEVACIZUMAB
     Route: 042
  14. ABRAXANE [Concomitant]
     Active Substance: PACLITAXEL
  15. ASPIRIN. [Concomitant]
     Active Substance: ASPIRIN
     Route: 065
  16. FRAGMIN [Concomitant]
     Active Substance: DALTEPARIN SODIUM
     Route: 065
  17. CIPROFLOXACIN. [Concomitant]
     Active Substance: CIPROFLOXACIN
  18. AVASTIN [Suspect]
     Active Substance: BEVACIZUMAB
     Route: 042
  19. PANITUMUMAB [Concomitant]
     Active Substance: PANITUMUMAB
     Route: 065
     Dates: start: 20090914, end: 20100316
  20. CETUXIMAB [Concomitant]
     Active Substance: CETUXIMAB
     Route: 065
     Dates: start: 20081029
  21. IMODIUM [Concomitant]
     Active Substance: LOPERAMIDE HYDROCHLORIDE
     Indication: DIARRHOEA
     Dosage: P.R.N
     Route: 065
  22. XELODA [Suspect]
     Active Substance: CAPECITABINE
     Indication: COLON CANCER
     Route: 048
     Dates: start: 20080312, end: 20081008

REACTIONS (49)
  - Intestinal fibrosis [Unknown]
  - Fatigue [Unknown]
  - Vomiting [Unknown]
  - Early satiety [Unknown]
  - Musculoskeletal discomfort [Unknown]
  - Emphysema [Unknown]
  - Small intestinal obstruction [Unknown]
  - Dyspareunia [Unknown]
  - Dyspnoea [Recovered/Resolved]
  - Metastases to lung [Unknown]
  - Disease progression [Unknown]
  - Hydroureter [Unknown]
  - Urinary tract infection [Unknown]
  - Nausea [Unknown]
  - Nocturia [Recovered/Resolved]
  - Hypotension [Unknown]
  - Death [Fatal]
  - Metastases to abdominal cavity [Unknown]
  - Metastases to liver [Unknown]
  - Obstructive uropathy [Unknown]
  - Tongue ulceration [Recovered/Resolved]
  - Diarrhoea [Unknown]
  - Neutropenia [Unknown]
  - Asthenia [Unknown]
  - Contusion [Unknown]
  - Haemorrhage [Unknown]
  - Hepatic cyst [Unknown]
  - Constipation [Unknown]
  - Hydronephrosis [Unknown]
  - Abdominal pain lower [Unknown]
  - Haemorrhoids [Unknown]
  - Sleep disorder [Unknown]
  - Cardiomegaly [Unknown]
  - Ovarian cyst [Unknown]
  - Local swelling [Unknown]
  - Abdominal pain [Unknown]
  - Depression [Unknown]
  - Drug ineffective [Unknown]
  - Blood creatinine increased [Unknown]
  - Hernia [Unknown]
  - Eating disorder [Unknown]
  - Abdominal distension [Unknown]
  - Osteosclerosis [Unknown]
  - Renal atrophy [Unknown]
  - Pulmonary embolism [Unknown]
  - Gastrooesophageal reflux disease [Unknown]
  - Urinary straining [Unknown]
  - Haemoglobin decreased [Unknown]
  - Superficial vein prominence [Unknown]

NARRATIVE: CASE EVENT DATE: 200703
